FAERS Safety Report 7044430-0 (Version None)
Quarter: 2010Q4

REPORT INFORMATION
  Report Type: 
  Country: None (occurrence: None)
  Receive Date: 20101014
  Receipt Date: 20091214
  Transmission Date: 20110411
  Serious: No
  Sender: FDA-Public Use
  Company Number: US-BAYER-200943759NA

PATIENT
  Age: 37 Year
  Sex: Female
  Weight: 66 kg

DRUGS (3)
  1. MIRENA [Suspect]
     Indication: CONTRACEPTION
     Dosage: FREQUENCY: CONTINUOUS
     Route: 015
     Dates: start: 20070517
  2. PROZAC [Concomitant]
     Indication: DEPRESSION
     Dosage: TOTAL DAILY DOSE: 40 MG
  3. AMBIEN [Concomitant]
     Indication: SLEEP DISORDER

REACTIONS (4)
  - ALOPECIA [None]
  - POLYMENORRHOEA [None]
  - PROCEDURAL PAIN [None]
  - VAGINAL HAEMORRHAGE [None]
